FAERS Safety Report 23423707 (Version 1)
Quarter: 2024Q1

REPORT INFORMATION
  Report Type: Report from Study
  Country: US (occurrence: US)
  Receive Date: 20240119
  Receipt Date: 20240119
  Transmission Date: 20240409
  Serious: Yes (Death)
  Sender: FDA-Public Use
  Company Number: US-ABBVIE-5596813

PATIENT
  Sex: Female

DRUGS (4)
  1. VENCLEXTA [Suspect]
     Active Substance: VENETOCLAX
     Indication: Chronic lymphocytic leukaemia (in remission)
     Dosage: FORM STRENGTH UNITS: 10 MILLIGRAM?TAKE 20MG  EVERY DAY ON WEEK 1
     Route: 048
  2. VENCLEXTA [Suspect]
     Active Substance: VENETOCLAX
     Indication: Chronic lymphocytic leukaemia (in remission)
     Dosage: FORM STRENGTH UNITS:100 MILLIGRAM?DURATION TEXT: 200MG(2X100MG TABS) DAILY WEEK 4
     Route: 048
  3. VENCLEXTA [Suspect]
     Active Substance: VENETOCLAX
     Indication: Chronic lymphocytic leukaemia (in remission)
     Dosage: FORM STRENGTH UNITS:50 MILLIGRAM?50MG(1X50MG TAB) DAILY BY MOUTH WEEK 2
     Route: 048
  4. VENCLEXTA [Suspect]
     Active Substance: VENETOCLAX
     Indication: Chronic lymphocytic leukaemia (in remission)
     Dosage: FORM STRENGTH UNITS:100 MILLIGRAM?100MG(1X100MG TAB) BY MOUTH DAILY WEEK 3
     Route: 048

REACTIONS (1)
  - Death [Fatal]
